FAERS Safety Report 4753425-9 (Version None)
Quarter: 2005Q3

REPORT INFORMATION
  Report Type: 
  Country: None (occurrence: None)
  Receive Date: 20050823
  Receipt Date: 20050805
  Transmission Date: 20060218
  Serious: Yes (Other)
  Sender: FDA-Public Use
  Company Number: US_0508120669

PATIENT
  Age: 75 Year

DRUGS (2)
  1. FORTEO [Suspect]
  2. CALCIUM GLUCONATE [Concomitant]

REACTIONS (2)
  - HYPERCALCAEMIA [None]
  - HYPERPARATHYROIDISM PRIMARY [None]
